FAERS Safety Report 22252717 (Version 1)
Quarter: 2023Q2

REPORT INFORMATION
  Report Type: Spontaneous
  Country: US (occurrence: None)
  Receive Date: 20230426
  Receipt Date: 20230426
  Transmission Date: 20230721
  Serious: No
  Sender: FDA-Public Use
  Company Number: US-Ultragenyx Pharmaceutical Inc.-US-UGNX-23-00129

PATIENT
  Sex: Male

DRUGS (2)
  1. DOJOLVI [Suspect]
     Active Substance: TRIHEPTANOIN
     Indication: Fatty acid oxidation disorder
     Route: 048
     Dates: start: 20230204
  2. DOJOLVI [Suspect]
     Active Substance: TRIHEPTANOIN
     Route: 048
     Dates: start: 2023

REACTIONS (2)
  - Frequent bowel movements [Unknown]
  - Diarrhoea [Unknown]
